FAERS Safety Report 25867699 (Version 5)
Quarter: 2025Q4

REPORT INFORMATION
  Report Type: Report from Study
  Country: US (occurrence: US)
  Receive Date: 20251001
  Receipt Date: 20251127
  Transmission Date: 20260117
  Serious: Yes (Hospitalization)
  Sender: CSL BEHRING
  Company Number: US-BEH-2025219826

PATIENT
  Age: 22 Year
  Sex: Female

DRUGS (5)
  1. GARADACIMAB [Suspect]
     Active Substance: GARADACIMAB
     Indication: Hereditary angioedema
     Dosage: 400 MG
     Route: 058
     Dates: start: 20250906, end: 20250906
  2. GARADACIMAB [Suspect]
     Active Substance: GARADACIMAB
     Indication: Prophylaxis
     Dosage: 200 MG, QMT
     Route: 058
  3. HAEGARDA [Concomitant]
     Active Substance: HUMAN C1-ESTERASE INHIBITOR
     Dosage: 200 IU
     Route: 065
  4. HAEGARDA [Concomitant]
     Active Substance: HUMAN C1-ESTERASE INHIBITOR
     Dosage: 2000 IU
     Route: 065
  5. RUCONEST [Concomitant]
     Active Substance: CONESTAT ALFA
     Dosage: 2100 IU

REACTIONS (10)
  - Hospitalisation [Not Recovered/Not Resolved]
  - Appetite disorder [Unknown]
  - Swelling [Unknown]
  - Pain in extremity [Unknown]
  - Arthralgia [Unknown]
  - Vomiting [Unknown]
  - Bladder disorder [Unknown]
  - Abdominal pain [Unknown]
  - Staphylococcal infection [Unknown]
  - Surgery [Unknown]

NARRATIVE: CASE EVENT DATE: 20250101
